FAERS Safety Report 10905932 (Version 2)
Quarter: 2015Q1

REPORT INFORMATION
  Report Type: Spontaneous
  Country: US (occurrence: None)
  Receive Date: 20150220
  Receipt Date: 20150319
  Transmission Date: 20150721
  Serious: Yes (Death)
  Sender: FDA-Public Use
  Company Number: LIT-018-15-US

PATIENT
  Age: 5 Year
  Sex: Male

DRUGS (4)
  1. HUMAN COAGULATION FACTOR VIII/VON WILLEBRAND FACTOR COMPLEX [Suspect]
     Active Substance: HUMAN COAGULATION FACTOR VIII/VON WILLEBRAND FACTOR COMPLEX
     Indication: IMMUNE TOLERANCE INDUCTION
     Route: 042
  2. ANTI-CD20 ANTIBODY [Concomitant]
  3. ACTIVATED PROTHROMBIN COMPLEX CONCENTRATE [Concomitant]
  4. COAGULATION FACTOR VIIA RECOMBINANT [Concomitant]
     Active Substance: COAGULATION FACTOR VIIA RECOMBINANT HUMAN

REACTIONS (9)
  - Infection [None]
  - Pneumonia [None]
  - Pulmonary haemorrhage [None]
  - Device malfunction [None]
  - Pulmonary artery thrombosis [None]
  - Cardiomegaly [None]
  - Cardiac arrest [None]
  - Haemorrhage [None]
  - Drug ineffective [None]
